FAERS Safety Report 8992806 (Version 4)
Quarter: 2013Q2

REPORT INFORMATION
  Report Type: Spontaneous
  Country: US (occurrence: US)
  Receive Date: 20130102
  Receipt Date: 20130425
  Transmission Date: 20140414
  Serious: No
  Sender: FDA-Public Use
  Company Number: US-009507513-1212USA010020

PATIENT
  Age: 16 Year
  Sex: Female
  Weight: 71.66 kg

DRUGS (2)
  1. NEXPLANON [Suspect]
     Dosage: 1 ROD EVERY 3 YEARS
     Route: 059
     Dates: start: 20121220
  2. NEXPLANON [Suspect]
     Dosage: 1 ROD EVERY 3 YEARS
     Route: 059
     Dates: start: 20121220

REACTIONS (3)
  - Device difficult to use [Unknown]
  - Product quality issue [Unknown]
  - No adverse event [Unknown]
